FAERS Safety Report 7270035-2 (Version None)
Quarter: 2011Q1

REPORT INFORMATION
  Report Type: 
  Country: None (occurrence: None)
  Receive Date: 20110124
  Receipt Date: 20110124
  Transmission Date: 20110831
  Serious: No
  Sender: FDA-Public Use
  Company Number: None

PATIENT
  Sex: Male
  Weight: 85.2762 kg

DRUGS (2)
  1. VENLAFAXINE [Suspect]
     Indication: ANXIETY DISORDER
     Dosage: 75 MG QD PO
     Route: 048
     Dates: start: 20101222, end: 20110119
  2. BUPROPION HCL [Suspect]
     Indication: MAJOR DEPRESSION
     Dosage: 300 MG QD PO
     Route: 048
     Dates: start: 20081001, end: 20081201

REACTIONS (5)
  - DRUG INEFFECTIVE [None]
  - CONDITION AGGRAVATED [None]
  - ANXIETY [None]
  - NAUSEA [None]
  - DEPRESSION [None]
